FAERS Safety Report 21671954 (Version 1)
Quarter: 2022Q4

REPORT INFORMATION
  Report Type: Report from Study
  Country: US (occurrence: US)
  Receive Date: 20221202
  Receipt Date: 20221202
  Transmission Date: 20230112
  Serious: No
  Sender: FDA-Public Use
  Company Number: US-ZOGENIX INTERNATIONAL LIMITED-ZX008-2017-00082

PATIENT
  Age: 2 Year
  Sex: Male
  Weight: 12 kg

DRUGS (21)
  1. FENFLURAMINE HYDROCHLORIDE [Suspect]
     Active Substance: FENFLURAMINE HYDROCHLORIDE
     Indication: Severe myoclonic epilepsy of infancy
     Dosage: BLINDED
     Route: 048
     Dates: start: 20170530
  2. FENFLURAMINE HYDROCHLORIDE [Suspect]
     Active Substance: FENFLURAMINE HYDROCHLORIDE
     Indication: Severe myoclonic epilepsy of infancy
     Dosage: BLINDED
     Route: 048
     Dates: start: 20170530
  3. FENFLURAMINE HYDROCHLORIDE [Suspect]
     Active Substance: FENFLURAMINE HYDROCHLORIDE
     Indication: Severe myoclonic epilepsy of infancy
     Dosage: BLINDED
     Route: 048
     Dates: start: 20170530
  4. PLACEBO [Suspect]
     Active Substance: UNSPECIFIED INGREDIENT
     Indication: Severe myoclonic epilepsy of infancy
     Dosage: BLINDED
     Route: 048
     Dates: start: 20170530
  5. SODIUM BICARBONATE [Concomitant]
     Active Substance: SODIUM BICARBONATE
     Indication: Supplementation therapy
     Dosage: 1625 MG MILLIGRAM(S), TID
     Route: 048
     Dates: start: 201604
  6. PRILOSEC [Concomitant]
     Active Substance: OMEPRAZOLE MAGNESIUM
     Indication: Gastrooesophageal reflux disease
     Dosage: 0.5 TABLET, BID
     Route: 048
     Dates: start: 201610
  7. ACETAMINOPHEN [Concomitant]
     Active Substance: ACETAMINOPHEN
     Indication: Pyrexia
     Dosage: 3.6 ML MILLILITRE(S), PRN
     Route: 048
     Dates: start: 2015
  8. ACETAMINOPHEN [Concomitant]
     Active Substance: ACETAMINOPHEN
     Indication: Pain
  9. CALCIUM\VITAMIN D [Concomitant]
     Active Substance: CALCIUM\VITAMIN D
     Indication: Supplementation therapy
     Dosage: 500/250 MG MILLIGRAM(S)
     Route: 048
     Dates: start: 201604
  10. CALCIUM\VITAMIN D [Concomitant]
     Active Substance: CALCIUM\VITAMIN D
     Dosage: 250 MG MILLIGRAM(S), QPM
     Route: 048
     Dates: start: 201604
  11. VITAMINS [Concomitant]
     Active Substance: VITAMINS
     Indication: Supplementation therapy
     Dosage: 0.5 TABLET, QD
     Route: 048
     Dates: start: 201604
  12. SELENIUM [Concomitant]
     Active Substance: SELENIUM
     Indication: Supplementation therapy
     Dosage: 25 MICROGRAM(S), QD
     Route: 048
     Dates: start: 201604
  13. MAGNESIUM [Concomitant]
     Active Substance: MAGNESIUM
     Indication: Supplementation therapy
     Dosage: 125 MG MILLIGRAM(S), QD
     Route: 048
     Dates: start: 201604
  14. TOPAMAX [Concomitant]
     Active Substance: TOPIRAMATE
     Indication: Seizure
     Dosage: 45 MG MILLIGRAM(S), TID
     Route: 048
     Dates: start: 201506
  15. CLOBAZAM [Concomitant]
     Active Substance: CLOBAZAM
     Indication: Seizure
     Dosage: 5/5/10 MG
     Route: 048
     Dates: start: 201602
  16. AZITHROMYCIN [Concomitant]
     Active Substance: AZITHROMYCIN
     Indication: Prophylaxis
     Dosage: 125 MG MILLIGRAM(S), MONDAY AND THURSDAY
     Route: 048
     Dates: start: 20170406
  17. CLORAZEPATE DIPOTASSIUM [Concomitant]
     Active Substance: CLORAZEPATE DIPOTASSIUM
     Indication: Seizure
     Dosage: 1.875 MG MILLIGRAM(S), PRN
     Route: 048
     Dates: start: 201604
  18. DIASTAT [Concomitant]
     Active Substance: DIAZEPAM
     Indication: Seizure
     Dosage: 5 MG MILLIGRAM(S), PRN
     Route: 054
     Dates: start: 201506
  19. MIDAZOLAM [Concomitant]
     Active Substance: MIDAZOLAM
     Indication: Seizure
     Dosage: 1 MG MILLIGRAM(S), PRN
     Route: 045
     Dates: start: 201602
  20. IBUPROFEN [Concomitant]
     Active Substance: IBUPROFEN
     Indication: Pyrexia
     Dosage: UNK, PRN
     Route: 048
     Dates: start: 2015
  21. IBUPROFEN [Concomitant]
     Active Substance: IBUPROFEN
     Indication: Pain

REACTIONS (1)
  - Hypoglycaemia [Recovered/Resolved]

NARRATIVE: CASE EVENT DATE: 20170615
